FAERS Safety Report 24602505 (Version 1)
Quarter: 2024Q4

REPORT INFORMATION
  Report Type: Spontaneous
  Country: FR (occurrence: FR)
  Receive Date: 20241111
  Receipt Date: 20241111
  Transmission Date: 20250114
  Serious: Yes (Hospitalization)
  Sender: SANDOZ
  Company Number: None

PATIENT
  Age: 83 Year
  Sex: Male
  Weight: 110 kg

DRUGS (40)
  1. ALLOPURINOL [Suspect]
     Active Substance: ALLOPURINOL
     Indication: Product used for unknown indication
     Dosage: UNK
     Route: 065
     Dates: start: 20231023
  2. ASPIRIN DL-LYSINE [Suspect]
     Active Substance: ASPIRIN DL-LYSINE
     Indication: Product used for unknown indication
     Dosage: MORNINGUNK
     Route: 065
  3. BISOPROLOL [Suspect]
     Active Substance: BISOPROLOL
     Dosage: 1.25 MG, IN THE MORNINGUNK
     Route: 065
  4. BISOPROLOL [Suspect]
     Active Substance: BISOPROLOL
     Indication: Product used for unknown indication
     Dosage: IN THE MORNINGUNK
     Route: 065
  5. BISOPROLOL [Suspect]
     Active Substance: BISOPROLOL
     Dosage: 5.000MG QD
     Route: 048
     Dates: start: 20231002
  6. BISOPROLOL [Suspect]
     Active Substance: BISOPROLOL
     Dosage: 5MG, MORNING
     Route: 048
     Dates: start: 20231023
  7. PENICILLIN G BENZATHINE [Suspect]
     Active Substance: PENICILLIN G BENZATHINE
     Indication: Product used for unknown indication
     Dosage: UNK
     Route: 065
  8. BENZOYL PEROXIDE\CLINDAMYCIN [Suspect]
     Active Substance: BENZOYL PEROXIDE\CLINDAMYCIN
     Indication: Product used for unknown indication
     Dosage: UNK
     Route: 065
     Dates: start: 20231106
  9. CANDESARTAN [Suspect]
     Active Substance: CANDESARTAN
     Indication: Hypertension
     Dosage: 16 MG, QD, MORNING
     Route: 048
     Dates: start: 20231023
  10. CANDESARTAN [Suspect]
     Active Substance: CANDESARTAN
     Dosage: 50 MG, QD,MORNING AND EVENING FROM D1 TO D14
     Route: 048
     Dates: start: 20231106
  11. CANDESARTAN [Suspect]
     Active Substance: CANDESARTAN
     Dosage: UNK
     Route: 048
     Dates: start: 20230214
  12. CHOLECALCIFEROL [Suspect]
     Active Substance: CHOLECALCIFEROL
     Indication: Product used for unknown indication
     Dosage: 1 AMPOULE PER MONTHUNK
     Route: 065
  13. STREPTOVARYCIN [Suspect]
     Active Substance: STREPTOVARYCIN
     Indication: Product used for unknown indication
     Dosage: FROM D27 TO D37UNK
     Route: 065
  14. EZETIMIBE\SIMVASTATIN [Suspect]
     Active Substance: EZETIMIBE\SIMVASTATIN
     Indication: Product used for unknown indication
     Dosage: 10/40 MG MORNINGUNK
     Route: 065
     Dates: start: 20231023
  15. ELIQUIS [Suspect]
     Active Substance: APIXABAN
     Dosage: 2.5 MG, MORNING AND EVENINGUNK
     Route: 065
     Dates: start: 20231023
  16. ELIQUIS [Suspect]
     Active Substance: APIXABAN
     Indication: Atrial fibrillation
     Dosage: 5 MG, QD
     Route: 048
     Dates: start: 20231001
  17. ELIQUIS [Suspect]
     Active Substance: APIXABAN
     Dosage: 5 MG, QD
     Route: 048
     Dates: start: 20231010
  18. FUROSEMIDE [Suspect]
     Active Substance: FUROSEMIDE
     Indication: Oedema
     Dosage: 120 MG, QD
     Route: 048
     Dates: start: 20231002
  19. LANSOPRAZOLE [Suspect]
     Active Substance: LANSOPRAZOLE
     Indication: Product used for unknown indication
     Dosage: 15 MG, QD
     Route: 048
  20. LORAZEPAM [Suspect]
     Active Substance: LORAZEPAM
     Dosage: 20 MG, EVENING UNK
     Route: 065
  21. LORAZEPAM [Suspect]
     Active Substance: LORAZEPAM
     Indication: Product used for unknown indication
     Dosage: 20 MG, EVENINGUNK
     Route: 065
  22. PREDNISONE [Suspect]
     Active Substance: PREDNISONE
     Indication: Differentiation syndrome
     Dosage: 0.5MG/KG/DR FROM D1 TO D18UNK
     Route: 065
     Dates: start: 20231106
  23. SPAGULAX [Suspect]
     Active Substance: HERBALS\PLANTAGO OVATA SEED
     Indication: Product used for unknown indication
     Dosage: UNK
     Route: 065
  24. TRETINOIN [Suspect]
     Active Substance: TRETINOIN
     Indication: Acute myeloid leukaemia
     Dosage: 10 MG, QD
     Route: 065
  25. TRETINOIN [Suspect]
     Active Substance: TRETINOIN
     Dosage: 10 MG, QD
     Route: 065
  26. TRETINOIN [Suspect]
     Active Substance: TRETINOIN
     Indication: Acute promyelocytic leukaemia
     Dosage: 50 MG
     Route: 065
     Dates: start: 20230915
  27. TRETINOIN [Suspect]
     Active Substance: TRETINOIN
     Dosage: UNK
     Route: 065
     Dates: start: 20230915
  28. TRETINOIN [Suspect]
     Active Substance: TRETINOIN
     Dosage: MORNING AND EVENING FROM D1 TO D14
     Route: 048
     Dates: start: 20231106
  29. TRETINOIN [Suspect]
     Active Substance: TRETINOIN
     Dosage: 22.5MG/M2 OR 50MG MORNING AND EVENING UNTIL D34UNK
     Route: 065
  30. TRETINOIN [Suspect]
     Active Substance: TRETINOIN
     Dosage: 22.5MG/M2 OR 50MG MORNING AND EVENING UNTIL D34UNK
     Route: 065
  31. TRISENOX [Suspect]
     Active Substance: ARSENIC TRIOXIDE
     Indication: Acute myeloid leukaemia
     Dosage: 50 MG, QD
     Route: 042
     Dates: start: 20231106, end: 20231106
  32. URAPIDIL [Suspect]
     Active Substance: URAPIDIL
     Indication: Product used for unknown indication
     Dosage: 90 MG, QD
     Route: 048
  33. VALACYCLOVIR HYDROCHLORIDE [Suspect]
     Active Substance: VALACYCLOVIR HYDROCHLORIDE
     Indication: Infection
     Dosage: 1.000G QD
     Route: 048
     Dates: start: 20230915
  34. LERCANIDIPINE HYDROCHLORIDE [Suspect]
     Active Substance: LERCANIDIPINE HYDROCHLORIDE
     Indication: Product used for unknown indication
     Dosage: MORNINGUNK
     Route: 065
  35. POTASSIUM CHLORIDE [Concomitant]
     Active Substance: POTASSIUM CHLORIDE
     Indication: Product used for unknown indication
     Dosage: MORNING, NOON AND EVENINGUNK
     Route: 065
     Dates: start: 20231023
  36. INNOHEP [Concomitant]
     Active Substance: TINZAPARIN SODIUM
     Indication: Product used for unknown indication
     Dosage: UNK
     Route: 065
  37. MAGNESIUM [Concomitant]
     Active Substance: MAGNESIUM
     Indication: Product used for unknown indication
     Dosage: 1 AMPOULE IN THE MORNINGUNK
     Route: 065
  38. Meteospasmyl [Concomitant]
     Indication: Product used for unknown indication
     Dosage: MORNING, NOON AND EVENINGUNK
     Route: 065
  39. VESANOID [Concomitant]
     Active Substance: TRETINOIN
     Indication: Acute myeloid leukaemia
     Dosage: 100 MG, QD
     Route: 048
     Dates: start: 20231106
  40. ZOLPIDEM [Concomitant]
     Active Substance: ZOLPIDEM TARTRATE
     Indication: Product used for unknown indication
     Dosage: 10 MG, QD
     Route: 048
     Dates: start: 20231023

REACTIONS (2)
  - Acute kidney injury [Recovered/Resolved]
  - Diarrhoea [Recovering/Resolving]

NARRATIVE: CASE EVENT DATE: 20231107
